FAERS Safety Report 6041475-4 (Version None)
Quarter: 2009Q1

REPORT INFORMATION
  Report Type: 
  Country: None (occurrence: None)
  Receive Date: 20090116
  Receipt Date: 20081016
  Transmission Date: 20090719
  Serious: Yes (Other)
  Sender: FDA-Public Use
  Company Number: US-BRISTOL-MYERS SQUIBB COMPANY-14374524

PATIENT

DRUGS (1)
  1. ABILIFY [Suspect]

REACTIONS (1)
  - TRANSIENT ISCHAEMIC ATTACK [None]
